FAERS Safety Report 13393822 (Version 1)
Quarter: 2017Q1

REPORT INFORMATION
  Report Type: Report from Study
  Country: DK (occurrence: DK)
  Receive Date: 20170331
  Receipt Date: 20170331
  Transmission Date: 20170429
  Serious: Yes (Life-Threatening, Other)
  Sender: FDA-Public Use
  Company Number: PHHO2007DK023841

PATIENT
  Age: 58 Year
  Sex: Female
  Weight: 95.5 kg

DRUGS (2)
  1. ARIMIDEX [Concomitant]
     Active Substance: ANASTROZOLE
     Indication: PRODUCT USED FOR UNKNOWN INDICATION
     Route: 065
  2. TYKERB [Suspect]
     Active Substance: LAPATINIB DITOSYLATE
     Indication: BREAST CANCER
     Dosage: 1500 MG, QD
     Route: 048
     Dates: start: 20070307, end: 20070817

REACTIONS (8)
  - Fatigue [Unknown]
  - Diarrhoea [Unknown]
  - Hepatotoxicity [Recovered/Resolved with Sequelae]
  - Vomiting [Unknown]
  - Weight decreased [Unknown]
  - Jaundice [Unknown]
  - Pyrexia [Recovered/Resolved]
  - Nausea [Unknown]

NARRATIVE: CASE EVENT DATE: 20070817
